FAERS Safety Report 8384280-6 (Version None)
Quarter: 2012Q2

REPORT INFORMATION
  Report Type: 
  Country: None (occurrence: None)
  Receive Date: 20120524
  Receipt Date: 20120422
  Transmission Date: 20120825
  Serious: Yes (Other)
  Sender: FDA-Public Use
  Company Number: US-PFIZER INC-2012122409

PATIENT

DRUGS (1)
  1. VIAGRA [Suspect]
     Dosage: 25-50 MG (2X/WEEK)

REACTIONS (2)
  - JOINT SWELLING [None]
  - LYMPHOEDEMA [None]
